FAERS Safety Report 22062254 (Version 2)
Quarter: 2023Q1

REPORT INFORMATION
  Report Type: Report from Study
  Country: US (occurrence: US)
  Receive Date: 20230304
  Receipt Date: 20230317
  Transmission Date: 20230417
  Serious: Yes (Other)
  Sender: FDA-Public Use
  Company Number: US-TEVA-2023-US-2857537

PATIENT
  Sex: Female

DRUGS (1)
  1. AMOXICILLIN [Suspect]
     Active Substance: AMOXICILLIN
     Indication: Drug provocation test
     Route: 048

REACTIONS (3)
  - Type I hypersensitivity [Unknown]
  - Drug hypersensitivity [Unknown]
  - Maternal exposure during pregnancy [Unknown]
